FAERS Safety Report 16215079 (Version 1)
Quarter: 2019Q2

REPORT INFORMATION
  Report Type: Spontaneous
  Country: US (occurrence: US)
  Receive Date: 20190418
  Receipt Date: 20190418
  Transmission Date: 20190711
  Serious: Yes (Disabling)
  Sender: FDA-Public Use
  Company Number: None

PATIENT
  Age: 68 Year
  Sex: Female
  Weight: 65.25 kg

DRUGS (8)
  1. VITAMIN E [Concomitant]
     Active Substance: .ALPHA.-TOCOPHEROL
  2. VITAMIN C [Concomitant]
     Active Substance: ASCORBIC ACID
  3. VITAMIN D [Concomitant]
     Active Substance: VITAMIN D NOS
  4. WHEAT GERM OIL [Concomitant]
     Active Substance: WHEAT GERM OIL
  5. CEFDINIR. [Suspect]
     Active Substance: CEFDINIR
     Indication: HAEMOPHILUS INFECTION
     Dosage: ?          QUANTITY:1 CAPSULE(S);?
     Route: 048
     Dates: start: 20190228, end: 20190302
  6. VITAMIN A [Concomitant]
     Active Substance: VITAMIN A
  7. ARMOUR THYROID [Concomitant]
     Active Substance: THYROID, PORCINE
  8. FLAXSEED [Concomitant]
     Active Substance: FLAX SEED

REACTIONS (2)
  - Vulvovaginal pruritus [None]
  - Vaginal discharge [None]

NARRATIVE: CASE EVENT DATE: 20190228
